FAERS Safety Report 20630715 (Version 3)
Quarter: 2024Q1

REPORT INFORMATION
  Report Type: Spontaneous
  Country: FR (occurrence: FR)
  Receive Date: 20220324
  Receipt Date: 20240216
  Transmission Date: 20240410
  Serious: Yes (Other)
  Sender: FDA-Public Use
  Company Number: FR-SA-SAC20220308000656

PATIENT
  Age: 52 Year
  Sex: Male

DRUGS (4)
  1. DUPIXENT [Suspect]
     Active Substance: DUPILUMAB
     Indication: Polyp
     Dosage: 300 MG, QOW
     Route: 058
     Dates: start: 20210805, end: 20220304
  2. DUPIXENT [Suspect]
     Active Substance: DUPILUMAB
     Indication: Asthma
  3. SYMBICORT [Concomitant]
     Active Substance: BUDESONIDE\FORMOTEROL FUMARATE DIHYDRATE
     Dosage: UNK
  4. BECLOMETHASONE [Concomitant]
     Active Substance: BECLOMETHASONE
     Dosage: UNK

REACTIONS (10)
  - Polymyalgia rheumatica [Recovering/Resolving]
  - Arthralgia [Recovering/Resolving]
  - Joint swelling [Recovering/Resolving]
  - Joint stiffness [Recovering/Resolving]
  - Rash [Recovering/Resolving]
  - Rheumatoid arthritis [Unknown]
  - Rheumatic disorder [Unknown]
  - Injection site pain [Recovered/Resolved]
  - Injection site haematoma [Recovered/Resolved]
  - Product use in unapproved indication [Unknown]

NARRATIVE: CASE EVENT DATE: 20210805
